FAERS Safety Report 9244085 (Version 2)
Quarter: 2013Q2

REPORT INFORMATION
  Report Type: Spontaneous
  Country: US (occurrence: None)
  Receive Date: 20121123
  Receipt Date: 20130225
  Transmission Date: 20140414
  Serious: Yes (Other)
  Sender: FDA-Public Use
  Company Number: 362936

PATIENT
  Age: 61 Year
  Sex: Female
  Weight: 90.7 kg

DRUGS (2)
  1. VICTOZA (LIRAGLUTIDE) SOLUTION FOR INJECTION, 6MG/ML [Suspect]
     Indication: TYPE 2 DIABETES MELLITUS
     Route: 058
     Dates: start: 20121017, end: 20121021
  2. METFORMIN (METFORMIN) [Suspect]

REACTIONS (1)
  - Pancreatitis [None]
